FAERS Safety Report 7272887-9 (Version None)
Quarter: 2011Q1

REPORT INFORMATION
  Report Type: 
  Country: None (occurrence: None)
  Receive Date: 20110203
  Receipt Date: 20110131
  Transmission Date: 20110831
  Serious: Yes (Hospitalization, Other)
  Sender: FDA-Public Use
  Company Number: GB-PFIZER INC-2011023277

PATIENT
  Sex: Male

DRUGS (2)
  1. DIAZEPAM [Suspect]
  2. LYRICA [Suspect]
     Indication: GENERALISED ANXIETY DISORDER

REACTIONS (2)
  - DRUG DEPENDENCE [None]
  - SUICIDAL IDEATION [None]
